FAERS Safety Report 12429034 (Version 1)
Quarter: 2016Q2

REPORT INFORMATION
  Report Type: Spontaneous
  Country: US (occurrence: US)
  Receive Date: 20160602
  Receipt Date: 20160602
  Transmission Date: 20160815
  Serious: Yes (Hospitalization, Other)
  Sender: FDA-Public Use
  Company Number: US-JNJFOC-20160527626

PATIENT
  Sex: Male

DRUGS (1)
  1. IMBRUVICA [Suspect]
     Active Substance: IBRUTINIB
     Indication: CHRONIC LYMPHOCYTIC LEUKAEMIA
     Route: 048
     Dates: end: 201605

REACTIONS (3)
  - Haemorrhage [Recovered/Resolved]
  - Platelet disorder [Recovered/Resolved]
  - Micrographic skin surgery [Unknown]

NARRATIVE: CASE EVENT DATE: 201605
